FAERS Safety Report 6243940-3 (Version None)
Quarter: 2009Q2

REPORT INFORMATION
  Report Type: 
  Country: None (occurrence: None)
  Receive Date: 20090624
  Receipt Date: 20090615
  Transmission Date: 20091009
  Serious: Yes (Disabling, Other)
  Sender: FDA-Public Use
  Company Number: DE-AMGEN-US344908

PATIENT
  Sex: Female
  Weight: 70 kg

DRUGS (3)
  1. ENBREL [Suspect]
     Indication: VASCULITIS
     Dosage: PRE-FILLED SYRINGE, 50 MG, ONCE PER WEEK
     Route: 058
     Dates: end: 20090301
  2. ENBREL [Suspect]
     Indication: ANKYLOSING SPONDYLITIS
  3. ENDOXAN [Concomitant]
     Dosage: UNKNOWN
     Route: 065
     Dates: end: 20081201

REACTIONS (5)
  - CEREBROVASCULAR ACCIDENT [None]
  - CONDITION AGGRAVATED [None]
  - PNEUMONIA [None]
  - POLYNEUROPATHY [None]
  - VIRAL INFECTION [None]
